FAERS Safety Report 14420794 (Version 1)
Quarter: 2018Q1

REPORT INFORMATION
  Report Type: Spontaneous
  Country: US (occurrence: US)
  Receive Date: 20180122
  Receipt Date: 20180122
  Transmission Date: 20180509
  Serious: No
  Sender: FDA-Public Use
  Company Number: US-ROCHE-1893377

PATIENT
  Sex: Female

DRUGS (1)
  1. RITUXAN [Suspect]
     Active Substance: RITUXIMAB
     Indication: PRODUCT USED FOR UNKNOWN INDICATION
     Dosage: 1000MG IV ON DAY 1 THEN ON DAY 15 AND EVERY 16 WEE
     Route: 042

REACTIONS (2)
  - Malaise [Unknown]
  - Bronchitis [Not Recovered/Not Resolved]
